FAERS Safety Report 16706227 (Version 1)
Quarter: 2019Q3

REPORT INFORMATION
  Report Type: Spontaneous
  Country: US (occurrence: US)
  Receive Date: 20190628
  Receipt Date: 20190628
  Transmission Date: 20191004
  Serious: No
  Sender: FDA-Public Use
  Company Number: None

PATIENT
  Age: 10 Year

DRUGS (1)
  1. MYCOPHENOLATE SUS 200MG/ML [Suspect]
     Active Substance: MYCOPHENOLIC ACID
     Dates: start: 201903

REACTIONS (1)
  - Pyrexia [None]

NARRATIVE: CASE EVENT DATE: 20190428
